FAERS Safety Report 6753227-8 (Version None)
Quarter: 2010Q2

REPORT INFORMATION
  Report Type: 
  Country: None (occurrence: None)
  Receive Date: 20100603
  Receipt Date: 20100520
  Transmission Date: 20101027
  Serious: Yes (Hospitalization)
  Sender: FDA-Public Use
  Company Number: DE-RANBAXY-2010RR-34110

PATIENT
  Age: 29 Year
  Sex: Male
  Weight: 83 kg

DRUGS (4)
  1. IBUPROFEN [Suspect]
     Indication: PAIN
     Dosage: 800 MG, TID
     Route: 048
     Dates: start: 20091202, end: 20100104
  2. PANTOZOL 40 MG [Concomitant]
     Indication: PROPHYLAXIS AGAINST GASTROINTESTINAL ULCER
     Dosage: 40 MG, QD
     Route: 048
     Dates: start: 20091202
  3. DISTRANEURIN-KAPSELN 192 MG [Concomitant]
     Indication: PROPHYLAXIS AGAINST ALCOHOLIC WITHDRAWAL SYNDROME
     Dosage: 384 MG, TID
     Route: 048
     Dates: start: 20091202, end: 20091207
  4. ENOXAPARIN SODIUM [Concomitant]
     Indication: THROMBOSIS PROPHYLAXIS
     Dosage: 40 MG, QD
     Route: 058
     Dates: start: 20091202, end: 20100107

REACTIONS (1)
  - PANCREATITIS ACUTE [None]
